FAERS Safety Report 8044493-X (Version None)
Quarter: 2012Q1

REPORT INFORMATION
  Report Type: 
  Country: None (occurrence: None)
  Receive Date: 20120111
  Receipt Date: 20120111
  Transmission Date: 20120608
  Serious: Yes (Life-Threatening)
  Sender: FDA-Public Use
  Company Number: None

PATIENT
  Sex: Female

DRUGS (1)
  1. SULFACETAMIDE SODIUM [Suspect]
     Dosage: 1 DROP EYES
     Route: 047

REACTIONS (15)
  - DYSPHAGIA [None]
  - PHARYNGITIS [None]
  - INFECTIVE GLOSSITIS [None]
  - ONYCHOMADESIS [None]
  - ADVERSE DRUG REACTION [None]
  - WEIGHT DECREASED [None]
  - DEPRESSION [None]
  - REGURGITATION [None]
  - ASTHENIA [None]
  - OROPHARYNGEAL PAIN [None]
  - BLINDNESS TRANSIENT [None]
  - PYREXIA [None]
  - HYPOPHAGIA [None]
  - RASH GENERALISED [None]
  - ALOPECIA [None]
